FAERS Safety Report 6016047-8 (Version None)
Quarter: 2008Q4

REPORT INFORMATION
  Report Type: 
  Country: None (occurrence: None)
  Receive Date: 20081222
  Receipt Date: 20081211
  Transmission Date: 20090506
  Serious: Yes (Other)
  Sender: FDA-Public Use
  Company Number: US-MERCK-0805USA00697

PATIENT
  Age: 58 Year
  Sex: Female

DRUGS (1)
  1. FOSAMAX [Suspect]
     Indication: OSTEOPENIA
     Route: 048
     Dates: start: 19990101

REACTIONS (7)
  - ANAEMIA [None]
  - ANKLE FRACTURE [None]
  - HIP FRACTURE [None]
  - INFLAMMATORY CARCINOMA OF THE BREAST [None]
  - OSTEOMYELITIS [None]
  - OSTEONECROSIS [None]
  - SMALL CELL LUNG CANCER STAGE UNSPECIFIED [None]
